FAERS Safety Report 6612760-X (Version None)
Quarter: 2010Q1

REPORT INFORMATION
  Report Type: 
  Country: None (occurrence: None)
  Receive Date: 20100223
  Receipt Date: 20100215
  Transmission Date: 20100710
  Serious: Yes (Hospitalization, Disabling)
  Sender: FDA-Public Use
  Company Number: 2007JP001024

PATIENT
  Age: 19 Year
  Sex: Male

DRUGS (4)
  1. PROGRAF [Suspect]
     Indication: RENAL TRANSPLANT
  2. BASILIXIMAB (BASILIXIMAB) (FORMULATION UNKNOWN) [Concomitant]
  3. PREDNISOLONE [Concomitant]
  4. MYCOPHENOLATE MOFETIL            FORMULATION UNKNOWN [Concomitant]

REACTIONS (8)
  - ARTHRALGIA [None]
  - BLOOD CREATININE INCREASED [None]
  - CYTOMEGALOVIRUS INFECTION [None]
  - GRANULOMA [None]
  - INFECTION IN AN IMMUNOCOMPROMISED HOST [None]
  - MYALGIA [None]
  - PROTEIN URINE PRESENT [None]
  - VASCULITIS [None]
